FAERS Safety Report 23453909 (Version 1)
Quarter: 2024Q1

REPORT INFORMATION
  Report Type: Spontaneous
  Country: US (occurrence: US)
  Receive Date: 20240129
  Receipt Date: 20240129
  Transmission Date: 20240410
  Serious: Yes (Hospitalization, Other)
  Sender: FDA-Public Use
  Company Number: US-SA-SAC20240125000116

PATIENT
  Sex: Male

DRUGS (1)
  1. THYMOGLOBULIN [Suspect]
     Active Substance: LAPINE T-LYMPHOCYTE IMMUNE GLOBULIN
     Dosage: 100 MG
     Route: 065
     Dates: start: 20240101, end: 20240102

REACTIONS (1)
  - Acute respiratory distress syndrome [Unknown]

NARRATIVE: CASE EVENT DATE: 20240102
